FAERS Safety Report 11237982 (Version 3)
Quarter: 2015Q3

REPORT INFORMATION
  Report Type: Spontaneous
  Country: US (occurrence: US)
  Receive Date: 20150703
  Receipt Date: 20150902
  Transmission Date: 20151125
  Serious: Yes (Hospitalization)
  Sender: FDA-Public Use
  Company Number: US-009507513-1506USA014410

PATIENT
  Age: 72 Year
  Sex: Female
  Weight: 53.61 kg

DRUGS (2)
  1. TICE BCG [Suspect]
     Active Substance: BACILLUS CALMETTE-GUERIN SUBSTRAIN TICE LIVE ANTIGEN
     Indication: BLADDER CANCER
     Dosage: 10 TREATMENTS
     Route: 043
     Dates: start: 201302
  2. TICE BCG [Suspect]
     Active Substance: BACILLUS CALMETTE-GUERIN SUBSTRAIN TICE LIVE ANTIGEN
     Dosage: FULL DOSE
     Route: 043
     Dates: start: 20150505, end: 20150505

REACTIONS (31)
  - Gait disturbance [Not Recovered/Not Resolved]
  - Vulvovaginal pain [Unknown]
  - Inguinal hernia [Unknown]
  - Nausea [Unknown]
  - Dyspnoea [Unknown]
  - Balance disorder [Unknown]
  - Pneumonia [Not Recovered/Not Resolved]
  - Swelling [Not Recovered/Not Resolved]
  - Urinary tract infection [Unknown]
  - Tachycardia [Unknown]
  - Pulmonary oedema [Not Recovered/Not Resolved]
  - Red blood cell count abnormal [Not Recovered/Not Resolved]
  - Fatigue [Not Recovered/Not Resolved]
  - Pain in extremity [Unknown]
  - Pleural effusion [Recovered/Resolved]
  - Gait disturbance [Unknown]
  - Hypertension [Unknown]
  - Pulmonary oedema [Recovered/Resolved]
  - Generalised oedema [Not Recovered/Not Resolved]
  - Cardiac failure congestive [Unknown]
  - Vomiting [Not Recovered/Not Resolved]
  - Nausea [Not Recovered/Not Resolved]
  - Cardiac flutter [Not Recovered/Not Resolved]
  - Nausea [Not Recovered/Not Resolved]
  - Rash [Unknown]
  - Fluid overload [Unknown]
  - Chronic obstructive pulmonary disease [Unknown]
  - Peripheral swelling [Recovered/Resolved]
  - Swelling [Unknown]
  - Urinary tract infection [Unknown]
  - Dizziness [Unknown]

NARRATIVE: CASE EVENT DATE: 2013
